FAERS Safety Report 6853013-4 (Version None)
Quarter: 2010Q3

REPORT INFORMATION
  Report Type: 
  Country: None (occurrence: None)
  Receive Date: 20100717
  Receipt Date: 20071128
  Transmission Date: 20110219
  Serious: No
  Sender: FDA-Public Use
  Company Number: US-PFIZER INC-2007102111

PATIENT
  Sex: Female
  Weight: 50 kg

DRUGS (3)
  1. CHANTIX [Suspect]
     Indication: SMOKING CESSATION THERAPY
     Route: 048
     Dates: start: 20071104, end: 20071105
  2. LEXAPRO [Concomitant]
  3. ADVAIR DISKUS 100/50 [Concomitant]

REACTIONS (4)
  - ABDOMINAL PAIN [None]
  - APHONIA [None]
  - DIZZINESS [None]
  - MALAISE [None]
